FAERS Safety Report 10620111 (Version 8)
Quarter: 2017Q3

REPORT INFORMATION
  Report Type: Report from Study
  Country: US (occurrence: US)
  Receive Date: 20141202
  Receipt Date: 20170906
  Transmission Date: 20171127
  Serious: Yes (Hospitalization, Other)
  Sender: FDA-Public Use
  Company Number: US-SA-2014SA111164

PATIENT
  Age: 28 Year
  Sex: Female

DRUGS (6)
  1. NEURONTIN [Concomitant]
     Active Substance: GABAPENTIN
     Indication: MUSCLE SPASMS
  2. TECFIDERA [Suspect]
     Active Substance: DIMETHYL FUMARATE
     Indication: MULTIPLE SCLEROSIS
     Route: 065
     Dates: start: 20140807
  3. ZOFRAN [Concomitant]
     Active Substance: ONDANSETRON HYDROCHLORIDE
  4. NEURONTIN [Concomitant]
     Active Substance: GABAPENTIN
     Indication: HYPOAESTHESIA
  5. AUBAGIO [Suspect]
     Active Substance: TERIFLUNOMIDE
     Indication: SECONDARY PROGRESSIVE MULTIPLE SCLEROSIS
     Dosage: 7 AND 14MG
     Route: 048
     Dates: start: 20140807, end: 201507
  6. AUBAGIO [Suspect]
     Active Substance: TERIFLUNOMIDE
     Indication: SECONDARY PROGRESSIVE MULTIPLE SCLEROSIS
     Dosage: 7 AND 14MG
     Route: 048
     Dates: end: 20170602

REACTIONS (22)
  - Hot flush [Recovered/Resolved]
  - Stress [Unknown]
  - Insomnia [Unknown]
  - Surgery [Unknown]
  - Back disorder [Not Recovered/Not Resolved]
  - Feeling cold [Unknown]
  - Multiple sclerosis relapse [Not Recovered/Not Resolved]
  - Tremor [Unknown]
  - Fall [Recovered/Resolved]
  - Intentional product use issue [Unknown]
  - Migraine [Not Recovered/Not Resolved]
  - Paraesthesia [Unknown]
  - Headache [Unknown]
  - Obsessive-compulsive disorder [Unknown]
  - Pain [Unknown]
  - Fatigue [Unknown]
  - Unevaluable event [Unknown]
  - Loss of consciousness [Unknown]
  - Dyspnoea [Unknown]
  - Musculoskeletal stiffness [Unknown]
  - Tendon injury [Unknown]
  - Hypoaesthesia [Unknown]

NARRATIVE: CASE EVENT DATE: 20140810
